FAERS Safety Report 9236894 (Version 1)
Quarter: 2013Q2

REPORT INFORMATION
  Report Type: Spontaneous
  Country: ES (occurrence: ES)
  Receive Date: 20130417
  Receipt Date: 20130417
  Transmission Date: 20140414
  Serious: Yes (Hospitalization, Other)
  Sender: FDA-Public Use
  Company Number: ES-BRISTOL-MYERS SQUIBB COMPANY-18775817

PATIENT
  Age: 89 Year
  Sex: Female

DRUGS (13)
  1. APROVEL [Suspect]
     Route: 048
     Dates: start: 2011, end: 20111028
  2. ALDACTONE [Interacting]
     Route: 048
     Dates: start: 2011, end: 20111028
  3. LESCOL [Concomitant]
     Route: 048
  4. FLUMIL [Concomitant]
     Route: 048
  5. ZYLORIC [Concomitant]
     Route: 048
  6. LOBIVON [Concomitant]
     Route: 048
  7. DIANBEN [Concomitant]
     Route: 048
  8. SINTROM [Concomitant]
     Route: 048
  9. HUMALOG [Concomitant]
     Route: 058
  10. ANAGASTRA [Concomitant]
     Route: 048
  11. SERETIDE [Concomitant]
     Route: 055
  12. FUROSEMIDE [Concomitant]
     Route: 048
  13. FERO-GRADUMET [Concomitant]
     Route: 048

REACTIONS (2)
  - Hyperkalaemia [Recovered/Resolved]
  - Drug interaction [Unknown]
